FAERS Safety Report 4335819-9 (Version None)
Quarter: 2004Q2

REPORT INFORMATION
  Report Type: 
  Country: None (occurrence: None)
  Receive Date: 20040406
  Receipt Date: 20040325
  Transmission Date: 20050107
  Serious: Yes (Other)
  Sender: FDA-Public Use
  Company Number: US063624

PATIENT
  Age: 28 Year
  Sex: Female

DRUGS (7)
  1. ENBREL [Suspect]
     Dosage: 25 MG, 2 IN 1 WEEKS, SC
     Route: 058
     Dates: start: 19990901, end: 20031218
  2. PREDNISOLONE [Concomitant]
  3. TRIMETHOPRIM-SULFAMETHOXAZOLE [Concomitant]
  4. TOCOPHEROL CONCENTRATE CAP [Concomitant]
  5. PANTOPRAZOLE [Concomitant]
  6. FOLIC ACID [Concomitant]
  7. POTASSIUM IODIDE [Concomitant]

REACTIONS (4)
  - ABORTION SPONTANEOUS [None]
  - COMPLICATIONS OF MATERNAL EXPOSURE TO THERAPEUTIC DRUGS [None]
  - MATERNAL DRUGS AFFECTING FOETUS [None]
  - PREGNANCY [None]
